FAERS Safety Report 7073616-4 (Version None)
Quarter: 2010Q4

REPORT INFORMATION
  Report Type: 
  Country: None (occurrence: None)
  Receive Date: 20101029
  Receipt Date: 20100728
  Transmission Date: 20110411
  Serious: No
  Sender: FDA-Public Use
  Company Number: A0871156A

PATIENT
  Sex: Female

DRUGS (21)
  1. ADVAIR DISKUS 100/50 [Suspect]
     Indication: ASTHMA
     Dosage: 1PUFF PER DAY
     Route: 055
     Dates: start: 20070101, end: 20070101
  2. FLOVENT [Suspect]
     Indication: ASTHMA
     Dosage: 2PUFF PER DAY
     Route: 055
     Dates: start: 20091201, end: 20100201
  3. UNKNOWN [Suspect]
     Dosage: 2PUFF PER DAY
     Dates: start: 20091101, end: 20091101
  4. FORADIL [Suspect]
     Dosage: 2PUFF PER DAY
     Dates: start: 20030101, end: 20030101
  5. DIOVAN [Concomitant]
  6. CARDIZEM LA [Concomitant]
  7. TENORMIN [Concomitant]
  8. PLAVIX [Concomitant]
  9. SINGULAIR [Concomitant]
  10. CRESTOR [Concomitant]
  11. ASPIRIN [Concomitant]
  12. LASIX [Concomitant]
  13. ASMACORT [Concomitant]
  14. VITAMIN D [Concomitant]
  15. KLOR-CON [Concomitant]
  16. METFORMIN [Concomitant]
  17. ADVIL [Concomitant]
  18. KONSYL [Concomitant]
  19. CALCIUM [Concomitant]
  20. MAGNESIUM [Concomitant]
  21. CENTRUM [Concomitant]

REACTIONS (8)
  - BRONCHITIS [None]
  - COUGH [None]
  - ENLARGED UVULA [None]
  - ORAL DISORDER [None]
  - PHARYNGEAL ERYTHEMA [None]
  - PHARYNGEAL OEDEMA [None]
  - SINUSITIS [None]
  - WHEEZING [None]
